FAERS Safety Report 6429637-5 (Version None)
Quarter: 2009Q4

REPORT INFORMATION
  Report Type: 
  Country: None (occurrence: None)
  Receive Date: 20091105
  Receipt Date: 20091027
  Transmission Date: 20100525
  Serious: Yes (Other)
  Sender: FDA-Public Use
  Company Number: US-JNJCH-2009027194

PATIENT
  Age: 39 Year
  Sex: Female
  Weight: 127 kg

DRUGS (1)
  1. NEOSPORIN [Suspect]
     Indication: LIP DRY
     Dosage: TEXT:UNSPECIFIED ONE TIME
     Route: 061

REACTIONS (3)
  - LIP DISCOLOURATION [None]
  - LIP EXFOLIATION [None]
  - OFF LABEL USE [None]
